FAERS Safety Report 25330504 (Version 1)
Quarter: 2025Q2

REPORT INFORMATION
  Report Type: Spontaneous
  Country: CA (occurrence: None)
  Receive Date: 20250518
  Receipt Date: 20250518
  Transmission Date: 20250716
  Serious: Yes (Disabling, Other)
  Sender: FDA-CTU
  Company Number: None

PATIENT
  Age: 35 Year
  Sex: Female
  Weight: 55.8 kg

DRUGS (1)
  1. ESCITALOPRAM [Suspect]
     Active Substance: ESCITALOPRAM OXALATE
     Indication: Anxiety
     Dosage: OTHER QUANTITY : 1 CAPSULE(S);?FREQUENCY : AT BEDTIME;?
     Route: 048
     Dates: start: 20240601

REACTIONS (10)
  - Withdrawal syndrome [None]
  - Brain fog [None]
  - Anxiety [None]
  - Dizziness [None]
  - Derealisation [None]
  - Crying [None]
  - Abdominal discomfort [None]
  - Nervous system disorder [None]
  - Impaired quality of life [None]
  - Depression [None]

NARRATIVE: CASE EVENT DATE: 20241231
